FAERS Safety Report 5672765-2 (Version None)
Quarter: 2008Q1

REPORT INFORMATION
  Report Type: 
  Country: None (occurrence: None)
  Receive Date: 20080319
  Receipt Date: 20070724
  Transmission Date: 20080703
  Serious: No
  Sender: FDA-Public Use
  Company Number: US-KINGPHARMUSA00001-K200700930

PATIENT

DRUGS (8)
  1. ALTACE [Suspect]
     Indication: BLOOD PRESSURE
     Dosage: 5 MG, QD
     Route: 048
     Dates: start: 20060101, end: 20070701
  2. ALTACE [Suspect]
     Dosage: 10 MG, QD
     Route: 048
     Dates: start: 20070701, end: 20070701
  3. ALTACE [Suspect]
     Dosage: 5 MG, BID
     Route: 048
     Dates: start: 20070701
  4. TOPROL [Concomitant]
     Indication: CARDIAC DISORDER
     Dates: start: 20060101, end: 20070701
  5. ACIPHEX [Concomitant]
     Indication: DYSPEPSIA
  6. CRESTOR [Concomitant]
     Indication: BLOOD PRESSURE INCREASED
     Dates: start: 20070101
  7. ASPIRIN [Concomitant]
     Indication: CARDIAC DISORDER
     Dosage: 81 MG, QD
     Route: 048
     Dates: start: 20060101
  8. LIPITOR [Concomitant]
     Indication: BLOOD PRESSURE
     Dates: start: 20060101, end: 20070101

REACTIONS (3)
  - DYSPNOEA [None]
  - FATIGUE [None]
  - THIRST [None]
